FAERS Safety Report 8786263 (Version 1)
Quarter: 2012Q4

REPORT INFORMATION
  Report Type: 
  Country: US (occurrence: US)
  Receive Date: 20120914
  Receipt Date: 20120914
  Transmission Date: 20130627
  Serious: No
  Sender: FDA-Public Use
  Company Number: US-VERTEX PHARMACEUTICAL INC.-AE-2012-010059

PATIENT

DRUGS (3)
  1. INCIVEK [Suspect]
     Indication: HEPATITIS C
     Route: 048
     Dates: start: 20120617
  2. RIBAVIRIN [Concomitant]
     Dates: start: 20120617
  3. PEGASYS [Concomitant]
     Dates: start: 20120617

REACTIONS (8)
  - White blood cell count decreased [Unknown]
  - Influenza like illness [Unknown]
  - Weight decreased [Unknown]
  - Fatigue [Unknown]
  - Rash macular [Unknown]
  - Vomiting [Unknown]
  - Nausea [Unknown]
  - Pruritus [Unknown]
